FAERS Safety Report 12595446 (Version 1)
Quarter: 2016Q3

REPORT INFORMATION
  Report Type: Spontaneous
  Country: TR (occurrence: TR)
  Receive Date: 20160726
  Receipt Date: 20160726
  Transmission Date: 20161109
  Serious: Yes (Hospitalization, Other)
  Sender: FDA-Public Use
  Company Number: TR-WATSON-2016-15894

PATIENT
  Age: 57 Year
  Sex: Male

DRUGS (6)
  1. PRAMIPEXOLE (UNKNOWN) [Interacting]
     Active Substance: PRAMIPEXOLE
     Dosage: 1.5 MG, DAILY
     Route: 065
  2. SILDENAFIL. [Suspect]
     Active Substance: SILDENAFIL
     Indication: ERECTILE DYSFUNCTION
     Dosage: 50 MG, DAILY
     Route: 065
  3. RASAGILINE MESYLATE. [Concomitant]
     Active Substance: RASAGILINE MESYLATE
     Indication: PARKINSON^S DISEASE
     Dosage: 1 MG, DAILY
     Route: 065
  4. AMANTADINE [Concomitant]
     Active Substance: AMANTADINE
     Indication: PARKINSON^S DISEASE
     Dosage: 200 MG, DAILY
     Route: 065
  5. PRAMIPEXOLE (UNKNOWN) [Suspect]
     Active Substance: PRAMIPEXOLE
     Indication: PARKINSON^S DISEASE
     Dosage: 3 MG, DAILY
     Route: 065
  6. PANAX GINSENG [Interacting]
     Active Substance: ASIAN GINSENG
     Indication: ERECTILE DYSFUNCTION
     Dosage: UNK, BID
     Route: 065

REACTIONS (3)
  - Paranoia [Recovered/Resolved]
  - Mania [Recovered/Resolved]
  - Drug interaction [Unknown]
